FAERS Safety Report 6815068-2 (Version None)
Quarter: 2010Q2

REPORT INFORMATION
  Report Type: 
  Country: None (occurrence: None)
  Receive Date: 20100630
  Receipt Date: 20100630
  Transmission Date: 20101027
  Serious: Yes (Hospitalization)
  Sender: FDA-Public Use
  Company Number: None

PATIENT
  Age: 49 Year
  Sex: Female
  Weight: 70.3075 kg

DRUGS (1)
  1. YAZ [Suspect]
     Indication: MENSTRUATION IRREGULAR
     Dosage: 3-0.02MG 1 PER DAY PO
     Route: 048
     Dates: start: 20080615, end: 20090910

REACTIONS (2)
  - CHOLELITHIASIS [None]
  - HEPATIC FUNCTION ABNORMAL [None]
